FAERS Safety Report 16410194 (Version 1)
Quarter: 2019Q2

REPORT INFORMATION
  Report Type: Spontaneous
  Country: GB (occurrence: GB)
  Receive Date: 20190610
  Receipt Date: 20190610
  Transmission Date: 20190711
  Serious: Yes (Other)
  Sender: FDA-Public Use
  Company Number: GB-PFIZER INC-2019240052

PATIENT
  Age: 39 Year
  Sex: Female
  Weight: 59 kg

DRUGS (2)
  1. SAYANA PRESS [Suspect]
     Active Substance: MEDROXYPROGESTERONE\MEDROXYPROGESTERONE ACETATE
     Indication: CONTRACEPTION
     Dosage: 3 DF (INTO LEFT LOWER ABDOMEN, RIGHT THIGH, 104MG/0.65ML)
     Route: 058
     Dates: start: 20180625, end: 20181214
  2. SAYANA PRESS [Suspect]
     Active Substance: MEDROXYPROGESTERONE\MEDROXYPROGESTERONE ACETATE
     Dosage: 3 DF (INTO LEFT LOWER ABDOMEN, RIGHT THIGH, 104MG/0.65ML)
     Route: 058
     Dates: start: 20180625, end: 20181214

REACTIONS (2)
  - Lipoatrophy [Unknown]
  - Injection site necrosis [Unknown]
